FAERS Safety Report 17666641 (Version 2)
Quarter: 2020Q3

REPORT INFORMATION
  Report Type: Other
  Country: US (occurrence: US)
  Receive Date: 20200414
  Receipt Date: 20200721
  Transmission Date: 20201102
  Serious: Yes (Other)
  Sender: FDA-Public Use
  Company Number: US-ROCHE-2577878

PATIENT
  Age: 51 Year
  Sex: Female
  Weight: 81.72 kg

DRUGS (7)
  1. OCREVUS [Suspect]
     Active Substance: OCRELIZUMAB
     Indication: RELAPSING-REMITTING MULTIPLE SCLEROSIS
     Dosage: 4/26/2019, 11/8/2019, 3/7/2018, 3/27/2018, 10/19/2018.
     Route: 042
     Dates: start: 20180307
  2. CELEXA [Concomitant]
     Active Substance: CITALOPRAM HYDROBROMIDE
     Indication: DEPRESSION
     Route: 048
     Dates: start: 2000
  3. DUAVEE [Concomitant]
     Active Substance: BAZEDOXIFENE ACETATE\ESTROGENS, CONJUGATED
     Indication: MENOPAUSE
     Route: 048
  4. BUPROPION SR [Concomitant]
     Active Substance: BUPROPION HYDROCHLORIDE
     Indication: DEPRESSION
     Route: 048
     Dates: start: 2000
  5. TEMAZEPAM. [Concomitant]
     Active Substance: TEMAZEPAM
     Indication: INSOMNIA
     Route: 048
     Dates: start: 2000
  6. TYLENOL [Concomitant]
     Active Substance: ACETAMINOPHEN
     Indication: PAIN
     Route: 048
  7. DIAZEPAM. [Suspect]
     Active Substance: DIAZEPAM
     Indication: ANXIETY
     Dosage: YES
     Route: 048
     Dates: start: 20020101

REACTIONS (8)
  - Sinusitis [Not Recovered/Not Resolved]
  - Clostridium difficile infection [Recovered/Resolved]
  - Pain [Recovered/Resolved]
  - Stress [Not Recovered/Not Resolved]
  - Infusion related reaction [Recovered/Resolved]
  - Fatigue [Recovered/Resolved]
  - Dyspnoea [Recovered/Resolved]
  - Nasopharyngitis [Not Recovered/Not Resolved]

NARRATIVE: CASE EVENT DATE: 20180307
